FAERS Safety Report 5035648-7 (Version None)
Quarter: 2006Q2

REPORT INFORMATION
  Report Type: 
  Country: None (occurrence: None)
  Receive Date: 20060622
  Receipt Date: 20060609
  Transmission Date: 20061013
  Serious: Yes (Life-Threatening, Hospitalization, Other)
  Sender: FDA-Public Use
  Company Number: FR-2006-007424

PATIENT
  Age: 61 Year
  Sex: Female

DRUGS (2)
  1. BETASERON [Suspect]
     Indication: MULTIPLE SCLEROSIS
     Dosage: 250 ?G/DAY, EVERY 2D, SUBCUTANEOUS
     Route: 058
     Dates: start: 20000127
  2. CELEBREX [Concomitant]

REACTIONS (5)
  - BREAST CANCER METASTATIC [None]
  - DIABETES MELLITUS [None]
  - METASTASES TO BONE [None]
  - OESTROGEN RECEPTOR ASSAY POSITIVE [None]
  - PROGESTERONE RECEPTOR ASSAY POSITIVE [None]
